FAERS Safety Report 19657492 (Version 2)
Quarter: 2021Q3

REPORT INFORMATION
  Report Type: Spontaneous
  Country: DE (occurrence: DE)
  Receive Date: 20210804
  Receipt Date: 20210805
  Transmission Date: 20211014
  Serious: Yes (Other)
  Sender: FDA-Public Use
  Company Number: DE-TAKEDA-2021TEU006746

PATIENT
  Age: 21 Year
  Sex: Male

DRUGS (10)
  1. ETORICOXIB. [Suspect]
     Active Substance: ETORICOXIB
     Indication: OFF LABEL USE
  2. TROFOSFAMIDE [Suspect]
     Active Substance: TROFOSFAMIDE
     Indication: HODGKIN^S DISEASE
     Dosage: 50 MILLIGRAM, QD
     Route: 065
  3. PIOGLITAZONE. [Suspect]
     Active Substance: PIOGLITAZONE
     Indication: HODGKIN^S DISEASE
     Dosage: 45 MILLIGRAM, QD
     Route: 048
  4. PIOGLITAZONE. [Suspect]
     Active Substance: PIOGLITAZONE
     Indication: OFF LABEL USE
  5. DEXAMETHASONE. [Suspect]
     Active Substance: DEXAMETHASONE
     Indication: OFF LABEL USE
  6. EVEROLIMUS. [Suspect]
     Active Substance: EVEROLIMUS
     Indication: HODGKIN^S DISEASE
     Dosage: 15 MILLIGRAM, QD
     Route: 048
  7. EVEROLIMUS. [Suspect]
     Active Substance: EVEROLIMUS
     Indication: OFF LABEL USE
  8. ETORICOXIB. [Suspect]
     Active Substance: ETORICOXIB
     Indication: HODGKIN^S DISEASE
     Dosage: 60 MILLIGRAM, QD
     Route: 048
  9. DEXAMETHASONE. [Suspect]
     Active Substance: DEXAMETHASONE
     Indication: HODGKIN^S DISEASE
     Dosage: 0.5 MILLIGRAM, QD
     Route: 048
  10. TROFOSFAMIDE [Suspect]
     Active Substance: TROFOSFAMIDE
     Indication: OFF LABEL USE

REACTIONS (5)
  - Haematotoxicity [Unknown]
  - Sinusitis [Unknown]
  - Pneumonia bacterial [Unknown]
  - Off label use [Unknown]
  - Product use in unapproved indication [Unknown]
